FAERS Safety Report 5431863-9 (Version None)
Quarter: 2007Q3

REPORT INFORMATION
  Report Type: 
  Country: None (occurrence: None)
  Receive Date: 20070731
  Receipt Date: 20070611
  Transmission Date: 20080115
  Serious: No
  Sender: FDA-Public Use
  Company Number: US200706002678

PATIENT
  Sex: Female

DRUGS (2)
  1. BYETTA [Suspect]
  2. EXENATIDE UNK STRENGTH PEN, DISPOSABLE DEVICE (EXENATIDE PEN (UNKNOWN [Concomitant]

REACTIONS (2)
  - GASTRIC DISORDER [None]
  - WEIGHT DECREASED [None]
